FAERS Safety Report 6547921-1 (Version None)
Quarter: 2010Q1

REPORT INFORMATION
  Report Type: 
  Country: None (occurrence: None)
  Receive Date: 20100124
  Receipt Date: 20091124
  Transmission Date: 20100710
  Serious: No
  Sender: FDA-Public Use
  Company Number: US-ALEXION-A200900982

PATIENT

DRUGS (16)
  1. SOLIRIS [Suspect]
     Indication: PAROXYSMAL NOCTURNAL HAEMOGLOBINURIA
     Dosage: 600 MG, QW
     Route: 042
     Dates: start: 20070607, end: 20070627
  2. SOLIRIS [Suspect]
     Dosage: 900 MG, Q2W
     Route: 042
     Dates: start: 20070703
  3. ATIVAN [Concomitant]
     Indication: ANXIETY
     Dosage: 0.5-1Q4H PRN
     Route: 048
  4. DESFERAL                           /00062903/ [Concomitant]
     Dosage: 1.5 ML/H OVER 8H ON M, W AND F
  5. FOLIC ACID [Concomitant]
     Dosage: 1 MG, QD
     Route: 048
  6. K-DUR [Concomitant]
     Dosage: 3 TABS QD
     Route: 048
  7. LASIX [Concomitant]
     Dosage: 40 MG, QD
     Route: 048
  8. LIPITOR [Concomitant]
     Dosage: 1 TABLET QD
     Route: 048
  9. METOPROLOL TARTRATE [Concomitant]
     Dosage: 25 MG, BID
     Route: 048
  10. MINITRAN                           /00003201/ [Concomitant]
     Dosage: 0.1 MG/HR, 1 TRANSDERMAL QD PRN
     Route: 062
  11. NITROGLYCERIN [Concomitant]
     Dosage: 0.4 MG, UNK
     Route: 060
  12. SENOKOT                            /00142201/ [Concomitant]
     Dosage: 1 TABLET QD
  13. TYLENOL (CAPLET) [Concomitant]
     Indication: PAIN
     Dosage: 2 TABS PRN
     Route: 048
  14. VITAMIN B12                        /00056201/ [Concomitant]
     Dosage: 1000 UG, QD
  15. VITAMIN A [Concomitant]
     Dosage: 1.25 MG, QWK
  16. VITAMIN E                          /00110501/ [Concomitant]
     Dosage: 1 TABLET QOD
     Route: 048

REACTIONS (1)
  - FLUID OVERLOAD [None]
